FAERS Safety Report 18333846 (Version 1)
Quarter: 2020Q4

REPORT INFORMATION
  Report Type: Other
  Country: UA (occurrence: UA)
  Receive Date: 20201001
  Receipt Date: 20201001
  Transmission Date: 20210113
  Serious: Yes (Life-Threatening)
  Sender: FDA-Public Use
  Company Number: UA-ACCORD-203460

PATIENT
  Age: 59 Year
  Sex: Female

DRUGS (4)
  1. ONDANSETRON [Concomitant]
     Active Substance: ONDANSETRON
     Dates: start: 20170524, end: 20170525
  2. CISPLATINA ACCORD [Suspect]
     Active Substance: CISPLATIN
     Indication: OVARIAN CANCER
     Route: 042
     Dates: start: 20170524, end: 20170524
  3. MANNITOL. [Concomitant]
     Active Substance: MANNITOL
     Dates: start: 20170524, end: 20170525
  4. PACLITAXEL. [Concomitant]
     Active Substance: PACLITAXEL
     Dates: start: 20170524, end: 20170525

REACTIONS (1)
  - Anaphylactic shock [Unknown]

NARRATIVE: CASE EVENT DATE: 20170524
